FAERS Safety Report 15306213 (Version 1)
Quarter: 2018Q3

REPORT INFORMATION
  Report Type: Spontaneous
  Country: US (occurrence: US)
  Receive Date: 20180822
  Receipt Date: 20180822
  Transmission Date: 20181010
  Serious: No
  Sender: FDA-Public Use
  Company Number: US-PFIZER INC-2018236158

PATIENT
  Age: 51 Year
  Sex: Female

DRUGS (1)
  1. LYRICA [Suspect]
     Active Substance: PREGABALIN
     Dosage: 675 MG, DAILY [225MG CAPSULE / QTY 90 / DAYS SUPPLY 30]

REACTIONS (2)
  - Prescribed overdose [Unknown]
  - Pain [Unknown]
